FAERS Safety Report 7315030-X (Version None)
Quarter: 2011Q1

REPORT INFORMATION
  Report Type: 
  Country: None (occurrence: None)
  Receive Date: 20110225
  Receipt Date: 20100331
  Transmission Date: 20110831
  Serious: No
  Sender: FDA-Public Use
  Company Number: US-MYLANLABS-2010S1004341

PATIENT
  Age: 14 Year
  Sex: Female
  Weight: 54.43 kg

DRUGS (5)
  1. SOTRET [Suspect]
     Route: 048
  2. SOTRET [Suspect]
     Indication: ACNE
     Route: 048
  3. SOTRET [Suspect]
     Route: 048
     Dates: end: 20091203
  4. ORTHO TRI-CYCLEN [Concomitant]
     Dates: start: 20090701
  5. AMNESTEEM [Suspect]
     Indication: ACNE
     Route: 048
     Dates: end: 20091203

REACTIONS (3)
  - HEADACHE [None]
  - LABORATORY TEST ABNORMAL [None]
  - FATIGUE [None]
